FAERS Safety Report 4413066-X (Version None)
Quarter: 2004Q3

REPORT INFORMATION
  Report Type: 
  Country: None (occurrence: None)
  Receive Date: 20040802
  Receipt Date: 20040802
  Transmission Date: 20050211
  Serious: No
  Sender: FDA-Public Use
  Company Number: None

PATIENT
  Sex: Female
  Weight: 84.369 kg

DRUGS (6)
  1. SEROQUEL [Suspect]
     Indication: BORDERLINE PERSONALITY DISORDER
     Dosage: 25 MG PO QD, 50 MG PO HS
     Route: 048
     Dates: start: 20040630, end: 20040630
  2. LEXAPRO [Concomitant]
  3. NITROFURANTOIN [Concomitant]
  4. ACETAMINOPHEN [Concomitant]
  5. AMBIEN [Concomitant]
  6. MILK OF MAGNESIA TAB [Concomitant]

REACTIONS (3)
  - CHEST PAIN [None]
  - DYSPNOEA [None]
  - HYPOAESTHESIA [None]
